FAERS Safety Report 7022169-5 (Version None)
Quarter: 2010Q3

REPORT INFORMATION
  Report Type: 
  Country: None (occurrence: None)
  Receive Date: 20100930
  Receipt Date: 20100922
  Transmission Date: 20110219
  Serious: Yes (Other)
  Sender: FDA-Public Use
  Company Number: PHFR2010IE02333

PATIENT
  Sex: Male

DRUGS (2)
  1. CLOZARIL [Suspect]
     Indication: SCHIZOPHRENIA
     Dosage: UNK
     Route: 048
     Dates: start: 20100719
  2. CLOZARIL [Suspect]
     Dosage: IN EXCESS OF 2000MG
     Route: 048
     Dates: start: 20100816

REACTIONS (2)
  - ALCOHOL ABUSE [None]
  - OVERDOSE [None]
